FAERS Safety Report 12430569 (Version 8)
Quarter: 2016Q4

REPORT INFORMATION
  Report Type: Report from Study
  Country: US (occurrence: US)
  Receive Date: 20160602
  Receipt Date: 20161121
  Transmission Date: 20170207
  Serious: Yes (Death, Hospitalization, Disabling)
  Sender: FDA-Public Use
  Company Number: US-ACTELION-A-NJ2016-135398

PATIENT
  Age: 74 Year
  Sex: Male
  Weight: 68.93 kg

DRUGS (11)
  1. VELETRI [Suspect]
     Active Substance: EPOPROSTENOL
     Dosage: 7 NG/KG, PER MIN
     Route: 042
  2. K-DUR [Concomitant]
     Active Substance: POTASSIUM CHLORIDE
  3. PRILOSEC [Concomitant]
     Active Substance: OMEPRAZOLE MAGNESIUM
  4. THIAMINE. [Concomitant]
     Active Substance: THIAMINE
  5. BUMEX [Concomitant]
     Active Substance: BUMETANIDE
     Dosage: 2 MG, BID
     Route: 048
  6. VELETRI [Suspect]
     Active Substance: EPOPROSTENOL
     Dosage: 8 NG/KG, PER MIN
     Route: 042
     Dates: end: 201609
  7. VELETRI [Suspect]
     Active Substance: EPOPROSTENOL
     Indication: PULMONARY ARTERIAL HYPERTENSION
     Dosage: 6 NG/KG, PER MIN
     Route: 042
     Dates: start: 201603
  8. REMODULIN [Suspect]
     Active Substance: TREPROSTINIL
     Indication: PULMONARY ARTERIAL HYPERTENSION
     Dosage: 6 NG/KG, PER MIN
     Route: 042
     Dates: start: 20160923
  9. ADCIRCA [Concomitant]
     Active Substance: TADALAFIL
  10. NORCO [Concomitant]
     Active Substance: ACETAMINOPHEN\HYDROCODONE BITARTRATE
  11. REVATIO [Concomitant]
     Active Substance: SILDENAFIL CITRATE

REACTIONS (24)
  - General physical health deterioration [Fatal]
  - Medical device change [Recovered/Resolved]
  - Peripheral swelling [Unknown]
  - Catheter placement [Unknown]
  - Decreased appetite [Unknown]
  - Device leakage [Recovered/Resolved]
  - Gastric disorder [Unknown]
  - Abdominal discomfort [Unknown]
  - Diarrhoea [Unknown]
  - Therapy non-responder [Unknown]
  - Loss of consciousness [Unknown]
  - Ascites [Unknown]
  - Pulmonary hypertension [Unknown]
  - Skin atrophy [Unknown]
  - Headache [Unknown]
  - Condition aggravated [Unknown]
  - Hypokalaemia [Recovering/Resolving]
  - Abdominal distension [Unknown]
  - Malaise [Unknown]
  - Nausea [Unknown]
  - Dyspnoea [Unknown]
  - Weight decreased [Unknown]
  - Oedema peripheral [Recovering/Resolving]
  - Blood potassium decreased [Recovering/Resolving]

NARRATIVE: CASE EVENT DATE: 20160527
